FAERS Safety Report 15204003 (Version 2)
Quarter: 2018Q3

REPORT INFORMATION
  Report Type: Spontaneous
  Country: US (occurrence: US)
  Receive Date: 20180726
  Receipt Date: 20180730
  Transmission Date: 20181010
  Serious: No
  Sender: FDA-Public Use
  Company Number: US-009507513-1807USA010613

PATIENT
  Age: 38 Year
  Sex: Female

DRUGS (1)
  1. PREGNYL [Suspect]
     Active Substance: CHORIOGONADOTROPIN ALFA
     Indication: INFERTILITY
     Dosage: 10000 USP UNITS, ONCE
     Route: 030
     Dates: start: 201806

REACTIONS (4)
  - Fatigue [Unknown]
  - Pain [Unknown]
  - Night sweats [Unknown]
  - Hot flush [Unknown]

NARRATIVE: CASE EVENT DATE: 2018
